FAERS Safety Report 20049471 (Version 2)
Quarter: 2022Q1

REPORT INFORMATION
  Report Type: Report from Study
  Country: CA (occurrence: CA)
  Receive Date: 20211109
  Receipt Date: 20220124
  Transmission Date: 20220424
  Serious: Yes (Other)
  Sender: FDA-Public Use
  Company Number: CA-NOVARTISPH-NVSC2021CA251512

PATIENT
  Sex: Male

DRUGS (1)
  1. MAYZENT [Suspect]
     Active Substance: SIPONIMOD
     Indication: Secondary progressive multiple sclerosis
     Dosage: UNK
     Route: 048
     Dates: start: 20210226

REACTIONS (5)
  - Diabetes mellitus [Unknown]
  - Heart rate increased [Unknown]
  - Blood cholesterol [Unknown]
  - Balance disorder [Unknown]
  - Hepatic enzyme increased [Unknown]
